FAERS Safety Report 6437190-5 (Version None)
Quarter: 2009Q4

REPORT INFORMATION
  Report Type: 
  Country: None (occurrence: None)
  Receive Date: 20091112
  Receipt Date: 20090914
  Transmission Date: 20100525
  Serious: No
  Sender: FDA-Public Use
  Company Number: A0785883A

PATIENT
  Age: 77 Year
  Sex: Female

DRUGS (5)
  1. TREXIMET [Suspect]
     Indication: MIGRAINE
     Dosage: 85MGM AS REQUIRED
     Route: 048
     Dates: start: 20090101
  2. LEXAPRO [Concomitant]
  3. TYLENOL [Concomitant]
  4. BABY ASPIRIN [Concomitant]
  5. VITAMINS [Concomitant]

REACTIONS (2)
  - PHOTODERMATOSIS [None]
  - RASH [None]
